FAERS Safety Report 4425202-X (Version None)
Quarter: 2004Q3

REPORT INFORMATION
  Report Type: 
  Country: None (occurrence: None)
  Receive Date: 20040809
  Receipt Date: 20040727
  Transmission Date: 20050211
  Serious: Yes (Other)
  Sender: FDA-Public Use
  Company Number: 24739

PATIENT
  Age: 53 Year
  Sex: Female

DRUGS (1)
  1. ALDARA [Suspect]
     Indication: CARCINOMA
     Dosage: 1 UNSPECIFIED (1 IN 1 DAY (S)), TOPICAL
     Route: 061

REACTIONS (7)
  - APPLICATION SITE DESQUAMATION [None]
  - APPLICATION SITE ERYTHEMA [None]
  - APPLICATION SITE INFECTION [None]
  - APPLICATION SITE IRRITATION [None]
  - APPLICATION SITE PAIN [None]
  - DERMATITIS [None]
  - PEMPHIGUS [None]
